FAERS Safety Report 8386907-1 (Version None)
Quarter: 2012Q2

REPORT INFORMATION
  Report Type: 
  Country: None (occurrence: None)
  Receive Date: 20120525
  Receipt Date: 20120516
  Transmission Date: 20120825
  Serious: Yes (Other)
  Sender: FDA-Public Use
  Company Number: US-SANOFI-AVENTIS-2012SA035126

PATIENT
  Age: 70 Year
  Sex: Female
  Weight: 73 kg

DRUGS (3)
  1. WARFARIN SODIUM [Concomitant]
  2. ASPIRIN [Concomitant]
     Indication: STENT PLACEMENT
  3. PLAVIX [Suspect]
     Indication: STENT PLACEMENT
     Route: 048
     Dates: start: 20120218

REACTIONS (4)
  - RASH [None]
  - VASCULAR OCCLUSION [None]
  - SCAB [None]
  - PRURITUS [None]
